FAERS Safety Report 5661952-5 (Version None)
Quarter: 2008Q1

REPORT INFORMATION
  Report Type: 
  Country: None (occurrence: None)
  Receive Date: 20080312
  Receipt Date: 20080310
  Transmission Date: 20080703
  Serious: No
  Sender: FDA-Public Use
  Company Number: US-BAXTER-2008BH001984

PATIENT
  Age: 26 Year
  Sex: Female
  Weight: 79 kg

DRUGS (5)
  1. HEPARIN SODIUM [Suspect]
     Indication: HYPERCOAGULATION
     Route: 058
     Dates: start: 20070801, end: 20080201
  2. ALBUTEROL [Suspect]
     Indication: PNEUMONIA
     Dosage: DOSE UNIT:UNKNOWN
     Route: 055
     Dates: start: 20080101, end: 20080201
  3. FOLIC ACID [Concomitant]
     Indication: VITAMIN SUPPLEMENTATION
     Route: 048
  4. VITAMIN TAB [Concomitant]
     Indication: VITAMIN SUPPLEMENTATION
     Route: 048
  5. SYMBICORT INHALER [Concomitant]
     Indication: DRUG USE FOR UNKNOWN INDICATION
     Route: 055

REACTIONS (4)
  - DRUG EXPOSURE DURING PREGNANCY [None]
  - HEADACHE [None]
  - HEART RATE INCREASED [None]
  - PNEUMONIA [None]
